FAERS Safety Report 25059594 (Version 1)
Quarter: 2025Q1

REPORT INFORMATION
  Report Type: Report from Study
  Country: HU (occurrence: HU)
  Receive Date: 20250310
  Receipt Date: 20250310
  Transmission Date: 20250409
  Serious: Yes (Hospitalization, Other)
  Sender: MYLAN
  Company Number: HU-RICHTER-2024-GR-008336

PATIENT
  Age: 73 Year
  Sex: Male

DRUGS (16)
  1. AMLODIPINE [Suspect]
     Active Substance: AMLODIPINE BESYLATE
     Indication: Product used for unknown indication
  2. SPIRONOLACTONE [Suspect]
     Active Substance: SPIRONOLACTONE
     Indication: Product used for unknown indication
  3. FAMOTIDINE [Suspect]
     Active Substance: FAMOTIDINE
     Indication: Product used for unknown indication
  4. MAGNESIUM CITRATE [Concomitant]
     Active Substance: MAGNESIUM CITRATE
     Indication: Magnesium deficiency
     Dosage: 2 DOSAGE FORM, QD (TWO TABLETS PER DAY, 500 MG)
     Dates: start: 202404
  5. SELENIUM [Concomitant]
     Active Substance: SELENIUM
     Indication: Fatigue
  6. ASPIRIN [Concomitant]
     Active Substance: ASPIRIN
     Indication: Thrombosis
     Dosage: UNK UNK, QD (1 AT NOON, AFTER A MEAL)
     Dates: start: 202404
  7. ALLOPURINOL [Concomitant]
     Active Substance: ALLOPURINOL
  8. CARVEDILOL [Concomitant]
     Active Substance: CARVEDILOL
  9. LEVOTHYROXINE SODIUM [Concomitant]
     Active Substance: LEVOTHYROXINE SODIUM
  10. TICAGRELOR [Concomitant]
     Active Substance: TICAGRELOR
  11. ASPIRIN [Concomitant]
     Active Substance: ASPIRIN
     Dosage: UNK UNK, QD (ONCE AT NOON)
  12. TRESIBA [Concomitant]
     Active Substance: INSULIN DEGLUDEC
     Indication: Diabetes mellitus
  13. NOVORAPID [Concomitant]
     Active Substance: INSULIN ASPART
     Indication: Diabetes mellitus
  14. Normaflore [Concomitant]
     Indication: Dysbiosis
  15. MAGNESIUM CARBONATE\MAGNESIUM OXIDE [Concomitant]
     Active Substance: MAGNESIUM CARBONATE\MAGNESIUM OXIDE
     Indication: Muscle spasms
  16. ENOXAPARIN SODIUM [Concomitant]
     Active Substance: ENOXAPARIN SODIUM

REACTIONS (4)
  - Renal failure [Unknown]
  - Hospitalisation [Unknown]
  - Coronary artery disease [Unknown]
  - Nasal septum perforation [Unknown]
